FAERS Safety Report 8249572-X (Version None)
Quarter: 2012Q2

REPORT INFORMATION
  Report Type: 
  Country: None (occurrence: None)
  Receive Date: 20120402
  Receipt Date: 20120323
  Transmission Date: 20120825
  Serious: Yes (Hospitalization, Other)
  Sender: FDA-Public Use
  Company Number: US-ASTELLAS-2012US001528

PATIENT
  Age: 68 Year
  Sex: Female

DRUGS (27)
  1. ZETIA [Concomitant]
     Indication: BLOOD CHOLESTEROL
     Dosage: UNK
     Route: 065
  2. MARINOL [Concomitant]
     Indication: PRODUCT USED FOR UNKNOWN INDICATION
     Dosage: UNK
     Route: 065
  3. PHENERGAN HCL [Concomitant]
     Indication: PRODUCT USED FOR UNKNOWN INDICATION
     Dosage: UNK
     Route: 065
  4. DASATINIB [Suspect]
     Indication: NON-SMALL CELL LUNG CANCER
     Dosage: 70 MG, UID/QD
     Route: 048
     Dates: start: 20111202, end: 20120107
  5. CLONAZEPAM [Concomitant]
     Indication: ANXIETY
     Dosage: UNK
     Route: 065
  6. EFFEXOR XR [Concomitant]
     Indication: DEPRESSION
     Dosage: UNK
     Route: 065
  7. EVISTA [Concomitant]
     Indication: OSTEOPOROSIS
     Dosage: UNK
     Route: 065
  8. TIMOLOL MALEATE [Concomitant]
     Indication: GLAUCOMA
     Dosage: UNK
     Route: 065
  9. CALCIUM CARBONATE [Concomitant]
     Indication: PRODUCT USED FOR UNKNOWN INDICATION
     Dosage: UNK
     Route: 065
  10. ERLOTINIB HYDROCHLORIDE [Suspect]
     Dosage: 150 MG, UID/QD
     Route: 048
     Dates: start: 20120120, end: 20120304
  11. PREVACID [Concomitant]
     Indication: GASTROOESOPHAGEAL REFLUX DISEASE
     Dosage: UNK
     Route: 065
  12. SCOPOLAMINE [Concomitant]
     Indication: PRODUCT USED FOR UNKNOWN INDICATION
     Dosage: UNK
     Route: 065
  13. DIOVAN [Concomitant]
     Indication: HYPERTENSION
     Dosage: UNK
     Route: 065
  14. LOMOTIL [Concomitant]
     Indication: PRODUCT USED FOR UNKNOWN INDICATION
     Dosage: UNK
     Route: 065
  15. MULTI-VITAMIN [Concomitant]
     Indication: PRODUCT USED FOR UNKNOWN INDICATION
     Dosage: UNK
     Route: 065
  16. DASATINIB [Suspect]
     Dosage: 70 MG, UID/QD
     Route: 048
     Dates: start: 20120120, end: 20120304
  17. TYLENOL [Concomitant]
     Indication: HEADACHE
     Dosage: UNK
     Route: 065
  18. HYDROCHLOROTHIAZIDE [Concomitant]
     Indication: HYPERTENSION
     Dosage: UNK
     Route: 065
  19. SIMVASTATIN [Concomitant]
     Indication: BLOOD CHOLESTEROL
     Dosage: UNK
     Route: 065
  20. XALATAN [Concomitant]
     Indication: GLAUCOMA
     Dosage: UNK
     Route: 065
  21. ONDANSETRON HCL [Concomitant]
     Indication: PRODUCT USED FOR UNKNOWN INDICATION
     Dosage: UNK
     Route: 065
  22. ERLOTINIB HYDROCHLORIDE [Suspect]
     Indication: NON-SMALL CELL LUNG CANCER
     Dosage: 150 MG, UID/QD
     Route: 048
     Dates: start: 20111202, end: 20120107
  23. ASPIRIN [Concomitant]
     Indication: CARDIOVASCULAR EVENT PROPHYLAXIS
     Dosage: UNK
     Route: 065
  24. FISH OIL [Concomitant]
     Indication: PRODUCT USED FOR UNKNOWN INDICATION
     Dosage: UNK
     Route: 065
  25. TOPROL-XL [Concomitant]
     Indication: HYPERTENSION
     Dosage: UNK
     Route: 065
  26. NORVASC [Concomitant]
     Indication: HYPERTENSION
     Dosage: UNK
     Route: 065
  27. REGLAN [Concomitant]
     Indication: PRODUCT USED FOR UNKNOWN INDICATION
     Dosage: UNK
     Route: 065

REACTIONS (6)
  - MALIGNANT PLEURAL EFFUSION [None]
  - ACUTE RESPIRATORY FAILURE [None]
  - DYSPNOEA [None]
  - DIARRHOEA [None]
  - ATELECTASIS [None]
  - ANXIETY [None]
